FAERS Safety Report 9045698 (Version 1)
Quarter: 2013Q1

REPORT INFORMATION
  Report Type: Report from Study
  Country: US (occurrence: US)
  Receive Date: 20130131
  Receipt Date: 20130131
  Transmission Date: 20140127
  Serious: No
  Sender: FDA-Public Use
  Company Number: US-ABBOTT-12P-163-1013360-00

PATIENT
  Age: 26 Year
  Sex: Male

DRUGS (5)
  1. HUMIRA [Suspect]
     Indication: ANKYLOSING SPONDYLITIS
     Dates: start: 201209
  2. ZOLOFT [Concomitant]
     Indication: DEPRESSION
     Dosage: 150 MG (1.5 TABLETS) DAILY
  3. ADVAIR [Concomitant]
     Indication: ASTHMA
     Dosage: 2 PUFFS DAILY
     Route: 055
  4. INH [Concomitant]
     Indication: TUBERCULOSIS
     Dosage: NIGHTLY
     Dates: start: 201208
  5. CANNABIS SATIVA SUBSP. INDICA TOP [Concomitant]
     Indication: PRODUCT USED FOR UNKNOWN INDICATION
     Dosage: 1 - 2 JOINTS DAILY

REACTIONS (3)
  - Drug dependence [Unknown]
  - Headache [Not Recovered/Not Resolved]
  - Sinus headache [Not Recovered/Not Resolved]
